FAERS Safety Report 19921062 (Version 6)
Quarter: 2022Q4

REPORT INFORMATION
  Report Type: Report from Study
  Country: AU (occurrence: AU)
  Receive Date: 20211005
  Receipt Date: 20221202
  Transmission Date: 20230113
  Serious: Yes (Hospitalization, Other)
  Sender: FDA-Public Use
  Company Number: AU-TAKEDA-2021TUS026924

PATIENT
  Age: 21 Year
  Sex: Female
  Weight: 47 kg

DRUGS (35)
  1. TEDUGLUTIDE [Suspect]
     Active Substance: TEDUGLUTIDE
     Indication: Short-bowel syndrome
     Dosage: 0.26 MILLILITER, QD
     Route: 058
     Dates: start: 20190801, end: 20210925
  2. TEDUGLUTIDE [Suspect]
     Active Substance: TEDUGLUTIDE
     Indication: Short-bowel syndrome
     Dosage: 0.26 MILLILITER, QD
     Route: 058
     Dates: start: 20190801, end: 20210925
  3. TEDUGLUTIDE [Suspect]
     Active Substance: TEDUGLUTIDE
     Indication: Short-bowel syndrome
     Dosage: 0.26 MILLILITER, QD
     Route: 058
     Dates: start: 20190801, end: 20210925
  4. TEDUGLUTIDE [Suspect]
     Active Substance: TEDUGLUTIDE
     Indication: Short-bowel syndrome
     Dosage: 0.26 MILLILITER, QD
     Route: 058
     Dates: start: 20190801, end: 20210925
  5. TEDUGLUTIDE [Suspect]
     Active Substance: TEDUGLUTIDE
     Indication: Functional gastrointestinal disorder
     Dosage: 0.24 MILLILITER, QD
     Route: 058
     Dates: start: 20190805
  6. TEDUGLUTIDE [Suspect]
     Active Substance: TEDUGLUTIDE
     Indication: Functional gastrointestinal disorder
     Dosage: 0.24 MILLILITER, QD
     Route: 058
     Dates: start: 20190805
  7. TEDUGLUTIDE [Suspect]
     Active Substance: TEDUGLUTIDE
     Indication: Functional gastrointestinal disorder
     Dosage: 0.24 MILLILITER, QD
     Route: 058
     Dates: start: 20190805
  8. TEDUGLUTIDE [Suspect]
     Active Substance: TEDUGLUTIDE
     Indication: Functional gastrointestinal disorder
     Dosage: 0.24 MILLILITER, QD
     Route: 058
     Dates: start: 20190805
  9. TEDUGLUTIDE [Suspect]
     Active Substance: TEDUGLUTIDE
     Dosage: 0.26 MILLILITER, QD
     Route: 058
     Dates: start: 20190805, end: 20210925
  10. TEDUGLUTIDE [Suspect]
     Active Substance: TEDUGLUTIDE
     Dosage: 0.26 MILLILITER, QD
     Route: 058
     Dates: start: 20190805, end: 20210925
  11. TEDUGLUTIDE [Suspect]
     Active Substance: TEDUGLUTIDE
     Dosage: 0.26 MILLILITER, QD
     Route: 058
     Dates: start: 20190805, end: 20210925
  12. TEDUGLUTIDE [Suspect]
     Active Substance: TEDUGLUTIDE
     Dosage: 0.26 MILLILITER, QD
     Route: 058
     Dates: start: 20190805, end: 20210925
  13. TEDUGLUTIDE [Suspect]
     Active Substance: TEDUGLUTIDE
     Dosage: UNK
     Route: 058
     Dates: start: 20190805, end: 20221115
  14. TEDUGLUTIDE [Suspect]
     Active Substance: TEDUGLUTIDE
     Dosage: UNK
     Route: 058
     Dates: start: 20190805, end: 20221115
  15. TEDUGLUTIDE [Suspect]
     Active Substance: TEDUGLUTIDE
     Dosage: UNK
     Route: 058
     Dates: start: 20190805, end: 20221115
  16. TEDUGLUTIDE [Suspect]
     Active Substance: TEDUGLUTIDE
     Dosage: UNK
     Route: 058
     Dates: start: 20190805, end: 20221115
  17. TEDUGLUTIDE [Suspect]
     Active Substance: TEDUGLUTIDE
     Dosage: 0.24 MILLILITER, QD
     Route: 058
     Dates: start: 20190902
  18. TEDUGLUTIDE [Suspect]
     Active Substance: TEDUGLUTIDE
     Dosage: 0.24 MILLILITER, QD
     Route: 058
     Dates: start: 20190902
  19. TEDUGLUTIDE [Suspect]
     Active Substance: TEDUGLUTIDE
     Dosage: 0.24 MILLILITER, QD
     Route: 058
     Dates: start: 20190902
  20. TEDUGLUTIDE [Suspect]
     Active Substance: TEDUGLUTIDE
     Dosage: 0.24 MILLILITER, QD
     Route: 058
     Dates: start: 20190902
  21. TEDUGLUTIDE [Suspect]
     Active Substance: TEDUGLUTIDE
     Dosage: 0.24 MILLILITER
     Route: 065
     Dates: start: 20220411, end: 20221115
  22. TEDUGLUTIDE [Suspect]
     Active Substance: TEDUGLUTIDE
     Dosage: 0.24 MILLILITER
     Route: 065
     Dates: start: 20220411, end: 20221115
  23. TEDUGLUTIDE [Suspect]
     Active Substance: TEDUGLUTIDE
     Dosage: 0.24 MILLILITER
     Route: 065
     Dates: start: 20220411, end: 20221115
  24. TEDUGLUTIDE [Suspect]
     Active Substance: TEDUGLUTIDE
     Dosage: 0.24 MILLILITER
     Route: 065
     Dates: start: 20220411, end: 20221115
  25. LANSOPRAZOLE [Concomitant]
     Active Substance: LANSOPRAZOLE
     Indication: Product used for unknown indication
     Dosage: 30 MILLIGRAM, QD
     Route: 065
  26. LANSOPRAZOLE [Concomitant]
     Active Substance: LANSOPRAZOLE
     Dosage: 1 DOSAGE FORM, QD
     Route: 065
  27. CHOLESTYRAMINE [Concomitant]
     Active Substance: CHOLESTYRAMINE
     Indication: Product used for unknown indication
     Dosage: 4 GRAM, QD
     Route: 065
  28. CHOLESTYRAMINE [Concomitant]
     Active Substance: CHOLESTYRAMINE
     Dosage: 1 DOSAGE FORM, QD
     Route: 065
  29. RIFAXIMIN [Concomitant]
     Active Substance: RIFAXIMIN
     Indication: Product used for unknown indication
     Dosage: 550 MILLIGRAM, BID
     Route: 065
  30. RIFAXIMIN [Concomitant]
     Active Substance: RIFAXIMIN
     Dosage: 1 DOSAGE FORM, BID
  31. WARFARIN [Concomitant]
     Active Substance: WARFARIN
     Dosage: 16 MILLIGRAM, QD
  32. BUDESONIDE [Concomitant]
     Active Substance: BUDESONIDE
     Dosage: 2 MILLIGRAM, QD
     Route: 065
  33. VITAMIN D [Concomitant]
     Active Substance: VITAMIN D NOS
     Dosage: 1500 INTERNATIONAL UNIT, QD
     Route: 065
  34. POTASSIUM CITRATE [Concomitant]
     Active Substance: POTASSIUM CITRATE
     Dosage: 400 MILLIGRAM
     Route: 065
  35. POTASSIUM CITRATE [Concomitant]
     Active Substance: POTASSIUM CITRATE
     Dosage: 800 MILLIGRAM
     Route: 065

REACTIONS (5)
  - Ovarian cyst [Not Recovered/Not Resolved]
  - Intestinal obstruction [Not Recovered/Not Resolved]
  - Haematuria [Recovered/Resolved]
  - Weight decreased [Not Recovered/Not Resolved]
  - Abdominal pain [Recovering/Resolving]

NARRATIVE: CASE EVENT DATE: 20210421
